FAERS Safety Report 25494974 (Version 2)
Quarter: 2025Q3

REPORT INFORMATION
  Report Type: Spontaneous
  Country: CA (occurrence: CA)
  Receive Date: 20250630
  Receipt Date: 20250821
  Transmission Date: 20251020
  Serious: Yes (Other)
  Sender: BIOMARIN
  Company Number: CA-SA-2025SA177847

PATIENT
  Age: 19 Year
  Sex: Female
  Weight: 36 kg

DRUGS (1)
  1. ALDURAZYME [Suspect]
     Active Substance: LARONIDASE
     Indication: Mucopolysaccharidosis I
     Dosage: 1 DOSAGE FORM, QW

REACTIONS (2)
  - Nephrotic syndrome [Not Recovered/Not Resolved]
  - Type III immune complex mediated reaction [Not Recovered/Not Resolved]

NARRATIVE: CASE EVENT DATE: 20241222
